FAERS Safety Report 14964606 (Version 1)
Quarter: 2018Q2

REPORT INFORMATION
  Report Type: Spontaneous
  Country: JP (occurrence: JP)
  Receive Date: 20180601
  Receipt Date: 20180601
  Transmission Date: 20180711
  Serious: Yes (Other)
  Sender: FDA-Public Use
  Company Number: JP-TEVA-2018-JP-899863

PATIENT
  Age: 8 Decade
  Sex: Male

DRUGS (6)
  1. BENDAMUSTINE HYDROCHLORIDE. [Suspect]
     Active Substance: BENDAMUSTINE HYDROCHLORIDE
     Dosage: 90 MG/M2, CYCLIC (THIRD CYCLE)
     Route: 042
     Dates: start: 201804, end: 201805
  2. RITUXIMAB. [Suspect]
     Active Substance: RITUXIMAB
     Indication: B-CELL LYMPHOMA
     Dosage: 375 MG/M2, CYCLIC (FIRST CYCLE)
     Route: 042
     Dates: start: 201802
  3. RITUXIMAB. [Suspect]
     Active Substance: RITUXIMAB
     Dosage: 375 MG/M2, CYCLIC (SECOND CYCLE)
     Route: 042
     Dates: start: 201803
  4. RITUXIMAB. [Suspect]
     Active Substance: RITUXIMAB
     Dosage: 375 MG/M2, CYCLIC (THIRD CYCLE)
     Route: 042
     Dates: start: 201804, end: 201805
  5. BENDAMUSTINE HYDROCHLORIDE. [Suspect]
     Active Substance: BENDAMUSTINE HYDROCHLORIDE
     Indication: B-CELL LYMPHOMA
     Dosage: 90 MG/M2, CYCLIC (FIRST CYCLE)
     Route: 042
     Dates: start: 201802
  6. BENDAMUSTINE HYDROCHLORIDE. [Suspect]
     Active Substance: BENDAMUSTINE HYDROCHLORIDE
     Dosage: 90 MG/M2, CYCLIC (SECOND CYCLE)
     Route: 042
     Dates: start: 201803

REACTIONS (2)
  - Prescribed underdose [Unknown]
  - Disease progression [Unknown]

NARRATIVE: CASE EVENT DATE: 201802
